FAERS Safety Report 6479591-5 (Version None)
Quarter: 2009Q4

REPORT INFORMATION
  Report Type: 
  Country: None (occurrence: None)
  Receive Date: 20091207
  Receipt Date: 20091207
  Transmission Date: 20100525
  Serious: Yes (Other)
  Sender: FDA-Public Use
  Company Number: None

PATIENT
  Age: 63 Year
  Sex: Male
  Weight: 106.5953 kg

DRUGS (1)
  1. MULTAQ [Suspect]
     Indication: HEART RATE IRREGULAR
     Dosage: 400MG  2 PO
     Route: 048
     Dates: start: 20091123, end: 20091201

REACTIONS (3)
  - DYSPNOEA EXERTIONAL [None]
  - INSOMNIA [None]
  - PALPITATIONS [None]
